FAERS Safety Report 18465385 (Version 1)
Quarter: 2020Q4

REPORT INFORMATION
  Report Type: Report from Study
  Country: US (occurrence: US)
  Receive Date: 20201105
  Receipt Date: 20201105
  Transmission Date: 20210114
  Serious: Yes (Hospitalization)
  Sender: FDA-Public Use
  Company Number: US-BIOGEN-2020BI00941902

PATIENT
  Sex: Female

DRUGS (1)
  1. TECFIDERA [Suspect]
     Active Substance: DIMETHYL FUMARATE
     Indication: MULTIPLE SCLEROSIS
     Route: 048
     Dates: start: 20150201, end: 20170731

REACTIONS (7)
  - Sleep apnoea syndrome [Unknown]
  - Candida infection [Recovered/Resolved]
  - Weight decreased [Unknown]
  - Hypophagia [Unknown]
  - Overdose [Unknown]
  - Peptic ulcer [Recovered/Resolved]
  - Aortic dilatation [Unknown]

NARRATIVE: CASE EVENT DATE: 2017
